FAERS Safety Report 11314580 (Version 1)
Quarter: 2015Q3

REPORT INFORMATION
  Report Type: Spontaneous
  Country: US (occurrence: US)
  Receive Date: 20150727
  Receipt Date: 20150727
  Transmission Date: 20151125
  Serious: Yes (Other)
  Sender: FDA-Public Use
  Company Number: US-PFIZER INC-2015245699

PATIENT
  Sex: Male

DRUGS (1)
  1. XANAX [Suspect]
     Active Substance: ALPRAZOLAM
     Indication: GOUT
     Dosage: UNK

REACTIONS (2)
  - Drug prescribing error [Unknown]
  - Suicidal ideation [Unknown]

NARRATIVE: CASE EVENT DATE: 199501
